FAERS Safety Report 8099687-4 (Version None)
Quarter: 2012Q1

REPORT INFORMATION
  Report Type: 
  Country: None (occurrence: None)
  Receive Date: 20120129
  Receipt Date: 20111008
  Transmission Date: 20120608
  Serious: No
  Sender: FDA-Public Use
  Company Number: US-ABBOTT-11P-163-0862332-00

PATIENT
  Age: 24 Year
  Sex: Male

DRUGS (5)
  1. PREDNISONE TAB [Concomitant]
     Indication: PRODUCT USED FOR UNKNOWN INDICATION
     Dosage: TAPERING DOSE - OFF IN 1 WEEK
  2. HUMIRA [Suspect]
     Dates: start: 20110930, end: 20110930
  3. OMEPRAZOLE [Concomitant]
     Indication: PRODUCT USED FOR UNKNOWN INDICATION
  4. HUMIRA [Suspect]
     Indication: CROHN'S DISEASE
     Dates: start: 20110916, end: 20110916
  5. HUMIRA [Suspect]

REACTIONS (3)
  - POLLAKIURIA [None]
  - URINARY TRACT INFECTION [None]
  - MICTURITION URGENCY [None]
